FAERS Safety Report 11994890 (Version 3)
Quarter: 2016Q1

REPORT INFORMATION
  Report Type: Spontaneous
  Country: DE (occurrence: DE)
  Receive Date: 20160203
  Receipt Date: 20160224
  Transmission Date: 20160526
  Serious: Yes (Other)
  Sender: FDA-Public Use
  Company Number: PHHY2016DE014094

PATIENT
  Sex: Female

DRUGS (1)
  1. DAFIRO [Suspect]
     Active Substance: AMLODIPINE\VALSARTAN
     Indication: PRODUCT USED FOR UNKNOWN INDICATION
     Dosage: UNK
     Route: 065
     Dates: start: 201412

REACTIONS (2)
  - Cerebrovascular accident [Unknown]
  - Dysphagia [Unknown]
